FAERS Safety Report 9158818 (Version 1)
Quarter: 2013Q1

REPORT INFORMATION
  Report Type: Spontaneous
  Country: FR (occurrence: FR)
  Receive Date: 20130313
  Receipt Date: 20130313
  Transmission Date: 20140127
  Serious: Yes (Life-Threatening, Hospitalization)
  Sender: FDA-Public Use
  Company Number: FR-BRISTOL-MYERS SQUIBB COMPANY-17442054

PATIENT
  Age: 85 Year
  Sex: Female

DRUGS (6)
  1. AXEPIM [Suspect]
     Indication: PYELONEPHRITIS
     Route: 042
     Dates: start: 20121129, end: 20121208
  2. COUMADIN [Suspect]
  3. GLUCOPHAGE [Suspect]
  4. TENORMINE [Suspect]
  5. LANTUS [Suspect]
  6. LASILIX [Suspect]

REACTIONS (5)
  - Coma [Recovered/Resolved]
  - Overdose [Recovered/Resolved]
  - Hepatocellular injury [Recovered/Resolved]
  - Encephalopathy [Recovered/Resolved]
  - Renal impairment [Recovered/Resolved]
